FAERS Safety Report 6415946-2 (Version None)
Quarter: 2009Q4

REPORT INFORMATION
  Report Type: 
  Country: None (occurrence: None)
  Receive Date: 20091027
  Receipt Date: 20091021
  Transmission Date: 20100525
  Serious: Yes (Hospitalization)
  Sender: FDA-Public Use
  Company Number: B0588861B

PATIENT
  Sex: Male
  Weight: 100.5 kg

DRUGS (7)
  1. LAPATINIB [Suspect]
     Dosage: 750MG PER DAY
     Route: 048
     Dates: start: 20090728
  2. GEMCITABINE [Suspect]
     Dosage: 2000MG CYCLIC
     Route: 042
     Dates: start: 20090728
  3. CISPLATIN [Suspect]
     Dosage: 145.6MG CYCLIC
     Route: 042
     Dates: start: 20090729
  4. MAGNYL [Concomitant]
     Dosage: 150MG PER DAY
     Route: 048
  5. GLUCOSAMINE [Concomitant]
     Dosage: 400MG FOUR TIMES PER DAY
     Route: 048
     Dates: start: 20070814
  6. ALBUTEROL SULFATE AUTOHALER [Concomitant]
     Indication: ASTHMA
     Dosage: 50MG PER DAY
     Route: 048
  7. BERODUAL [Concomitant]
     Indication: ASTHMA
     Dates: start: 19970101

REACTIONS (3)
  - DYSPNOEA [None]
  - OEDEMA PERIPHERAL [None]
  - WEIGHT INCREASED [None]
